FAERS Safety Report 24622710 (Version 3)
Quarter: 2024Q4

REPORT INFORMATION
  Report Type: Spontaneous
  Country: MX (occurrence: MX)
  Receive Date: 20241115
  Receipt Date: 20241129
  Transmission Date: 20250115
  Serious: Yes (Other)
  Sender: MERZ
  Company Number: MX-MRZWEB-2024110000058

PATIENT

DRUGS (1)
  1. BOTULINUM TOXIN TYPE A [Suspect]
     Active Substance: BOTULINUM TOXIN TYPE A
     Indication: Facial paralysis
     Dosage: 10 INTERNATIONAL UNIT
     Dates: start: 20241103, end: 20241103

REACTIONS (6)
  - Syncope [Recovered/Resolved]
  - Injection site vesicles [Recovered/Resolved with Sequelae]
  - Reflexes abnormal [Recovered/Resolved]
  - Injection site hypoaesthesia [Recovered/Resolved]
  - Injection site pain [Not Recovered/Not Resolved]
  - Off label use [Unknown]

NARRATIVE: CASE EVENT DATE: 20241103
